FAERS Safety Report 14378870 (Version 1)
Quarter: 2018Q1

REPORT INFORMATION
  Report Type: Report from Study
  Country: ES (occurrence: ES)
  Receive Date: 20180112
  Receipt Date: 20180112
  Transmission Date: 20180509
  Serious: Yes (Death, Hospitalization, Other)
  Sender: FDA-Public Use
  Company Number: ES-BRISTOL-MYERS SQUIBB COMPANY-BMS-2018-002550

PATIENT
  Age: 54 Year
  Sex: Male

DRUGS (2)
  1. SOVALDI [Suspect]
     Active Substance: SOFOSBUVIR
     Indication: HEPATITIS C RNA
     Dosage: 400 MG, QD
     Route: 048
     Dates: start: 20150115, end: 20150702
  2. DACLATASVIR DIHYDROCHLORIDE [Suspect]
     Active Substance: DACLATASVIR DIHYDROCHLORIDE
     Indication: HEPATITIS C RNA
     Dosage: 60 MG, QD
     Route: 048
     Dates: start: 20150115, end: 20150702

REACTIONS (2)
  - Urinary tract infection [Fatal]
  - Hepatic failure [Fatal]

NARRATIVE: CASE EVENT DATE: 20150811
